FAERS Safety Report 5215376-5 (Version None)
Quarter: 2007Q1

REPORT INFORMATION
  Report Type: 
  Country: None (occurrence: None)
  Receive Date: 20070116
  Receipt Date: 20070105
  Transmission Date: 20070707
  Serious: Yes (Death, Life-Threatening)
  Sender: FDA-Public Use
  Company Number: 061128-0001056

PATIENT
  Age: 8 Day
  Sex: Female

DRUGS (1)
  1. INDOMETHACIN [Suspect]
     Indication: PATENT DUCTUS ARTERIOSUS
     Dosage: 0.7 MG; QD; IV
     Route: 042
     Dates: start: 20050312, end: 20050314

REACTIONS (5)
  - HAEMORRHAGE INTRACRANIAL [None]
  - HEPATIC HAEMORRHAGE [None]
  - NEONATAL DISORDER [None]
  - PERITONEAL HAEMORRHAGE [None]
  - SHOCK [None]
